FAERS Safety Report 4287958-9 (Version None)
Quarter: 2004Q1

REPORT INFORMATION
  Report Type: 
  Country: None (occurrence: None)
  Receive Date: 20040205
  Receipt Date: 20040116
  Transmission Date: 20041129
  Serious: Yes (Death, Hospitalization)
  Sender: FDA-Public Use
  Company Number: F01200400094

PATIENT
  Age: 69 Year
  Sex: Male

DRUGS (7)
  1. OXALIPLATIN [Suspect]
     Indication: NON-SMALL CELL LUNG CANCER STAGE IV
     Dosage: 213 MG (130 MG/M2 ON DAY 2, Q3W) INTRAVENOUS NOS
     Route: 042
     Dates: start: 20031119, end: 20031119
  2. PACLITAXEL [Suspect]
     Dosage: 328 MG (200 MG/M2 ON DAY 1 Q3W) INTRAVENOUS NOS
     Route: 042
     Dates: start: 20031118, end: 20031118
  3. FLUMIL (ACETYLCYSTEINE) [Concomitant]
  4. LORAZEPAM [Concomitant]
  5. INSULIN NPH (INSULIN INJECTION, ISOPHANE) [Concomitant]
  6. SERETIDE (SALMETEROL+FLUTICASONE) [Concomitant]
  7. NEORECORMON (EPOETIN BETA) [Concomitant]

REACTIONS (5)
  - FEBRILE NEUTROPENIA [None]
  - HAEMOGLOBIN DECREASED [None]
  - PLATELET COUNT DECREASED [None]
  - PNEUMONIA [None]
  - RESPIRATORY FAILURE [None]
